FAERS Safety Report 7624238-5 (Version None)
Quarter: 2011Q3

REPORT INFORMATION
  Report Type: 
  Country: None (occurrence: None)
  Receive Date: 20110720
  Receipt Date: 20110711
  Transmission Date: 20111222
  Serious: Yes (Hospitalization, Other)
  Sender: FDA-Public Use
  Company Number: FR-BRISTOL-MYERS SQUIBB COMPANY-15898638

PATIENT
  Age: 82 Year
  Sex: Female

DRUGS (8)
  1. AMLODIPINE BESYLATE [Concomitant]
     Dosage: IT IS A CAPSULE
     Route: 048
     Dates: end: 20110401
  2. IRBESARTAN AND HYDROCHLOROTHIAZIDE [Suspect]
     Indication: HYPERTENSION
     Route: 048
     Dates: end: 20110401
  3. LANSOPRAZOLE [Concomitant]
     Dosage: TABLET
     Route: 048
  4. CRESTOR [Concomitant]
     Dosage: TABLET
     Route: 048
     Dates: end: 20110401
  5. DIGOXIN [Suspect]
     Route: 048
     Dates: end: 20110401
  6. ESCITALOPRAM OXALATE [Suspect]
     Indication: DEPRESSION
     Route: 048
     Dates: start: 20110408, end: 20110413
  7. NOROXIN [Concomitant]
     Route: 048
     Dates: start: 20110411, end: 20110401
  8. MINISINTROM [Concomitant]
     Dosage: TABLET
     Route: 048

REACTIONS (5)
  - HYPONATRAEMIA [None]
  - OVERDOSE [None]
  - CEREBROVASCULAR ACCIDENT [None]
  - VOMITING [None]
  - DEPRESSION [None]
